FAERS Safety Report 21508357 (Version 2)
Quarter: 2022Q4

REPORT INFORMATION
  Report Type: Spontaneous
  Country: NL (occurrence: NL)
  Receive Date: 20221026
  Receipt Date: 20221118
  Transmission Date: 20230113
  Serious: Yes (Other)
  Sender: FDA-Public Use
  Company Number: None

PATIENT
  Sex: Female

DRUGS (6)
  1. FLUCONAZOLE [Interacting]
     Active Substance: FLUCONAZOLE
     Indication: Onychomycosis
     Dosage: 1 X PER WEEK 1 CAPSULE, BRAND NAME NOT SPECIFIED , FORM STRENGTH : 150 MG  , UNIT DOSE : 150 MG   ,
     Dates: start: 20220902, end: 20220910
  2. TEGRETOL [Interacting]
     Active Substance: CARBAMAZEPINE
     Indication: Epilepsy
     Dosage: 800 MILLIGRAM DAILY; 2X A DAY 2 PIECE , CARBAMAZEPINE , FORM STRENGTH : 200 MG   ,  THERAPY END DATE
     Dates: start: 19921012
  3. SERETIDE [Concomitant]
     Active Substance: FLUTICASONE PROPIONATE\SALMETEROL XINAFOATE
     Indication: Asthma
     Dosage: SALMETEROL/FLUTICASON INHALATION POWDER 50/250UG/DO / SERETIDE DISKUS INHPDR 50/250MCG 60DO, THERAPY
     Route: 055
  4. VENTOLIN [Concomitant]
     Active Substance: ALBUTEROL SULFATE
     Indication: Asthma
     Dosage: IF NECESSARY, SALBUTAMOL INHALATION POWDER 200UG/DO / VENTOLIN DISKUS INHPDR 200MCG 60DO, THERAPY ST
     Route: 055
  5. VIMPAT [Concomitant]
     Active Substance: LACOSAMIDE
     Indication: Epilepsy
     Dosage: 100 MILLIGRAM DAILY; 2D1TABLET, LACOSAMIDE TABLET 50MG / VIMPAT 50MG, THERAPY START DATE AND END DAT
  6. LAMICTAL [Concomitant]
     Active Substance: LAMOTRIGINE
     Indication: Epilepsy
     Dosage: 400 MILLIGRAM DAILY; 2D1TABLET, LAMOTRIGINE CHEWING/DISPERTAB 200MG / LAMICTAL DISPERS CHEWING/DISPE

REACTIONS (4)
  - Epilepsy [Recovered/Resolved]
  - Dizziness [Recovered/Resolved]
  - Visual impairment [Recovered/Resolved]
  - Drug interaction [Recovered/Resolved]
